FAERS Safety Report 14472664 (Version 2)
Quarter: 2018Q1

REPORT INFORMATION
  Report Type: Report from Study
  Country: GB (occurrence: GB)
  Receive Date: 20180201
  Receipt Date: 20180213
  Transmission Date: 20180509
  Serious: Yes (Hospitalization)
  Sender: FDA-Public Use
  Company Number: GB-BAUSCH-BL-2018-001689

PATIENT
  Age: 64 Year
  Sex: Female

DRUGS (31)
  1. LEVOTHYROXINE. [Concomitant]
     Active Substance: LEVOTHYROXINE
     Indication: HYPOTHYROIDISM
     Route: 048
     Dates: start: 20120904
  2. ZOMETA [Concomitant]
     Active Substance: ZOLEDRONIC ACID
     Indication: OSTEOLYSIS
     Dosage: EVERY 3 MONTHS
     Route: 042
     Dates: start: 20140102
  3. METOCLOPRAMIDE. [Concomitant]
     Active Substance: METOCLOPRAMIDE
     Indication: PROPHYLAXIS OF NAUSEA AND VOMITING
     Dosage: AS NECESSARY
     Route: 048
     Dates: start: 20170131, end: 20170626
  4. BORTEZOMIB [Suspect]
     Active Substance: BORTEZOMIB
     Indication: PLASMA CELL MYELOMA
     Dosage: DOSAGE FORM: LYOPHILIZED POWDER, ON DAYS 1, 4, 8 AND 11 OF 21 DAYS CYCLE
     Route: 058
  5. RAMIPRIL. [Concomitant]
     Active Substance: RAMIPRIL
     Indication: HYPERTENSION
     Route: 048
     Dates: start: 2015, end: 20170313
  6. RAMIPRIL. [Concomitant]
     Active Substance: RAMIPRIL
     Indication: HYPOTHYROIDISM
     Route: 048
     Dates: start: 2015, end: 20170313
  7. PARACETAMOL [Concomitant]
     Active Substance: ACETAMINOPHEN
     Indication: PAIN IN EXTREMITY
     Dosage: AS NECESSARY; DOSAGE FORM: UNSPECIFIED
     Route: 048
     Dates: start: 20170530, end: 20170531
  8. CALCEOS [Concomitant]
     Active Substance: CALCIUM CARBONATE\CHOLECALCIFEROL
     Indication: OSTEOLYSIS
     Route: 048
     Dates: start: 201209
  9. HYDROCORTISONE. [Concomitant]
     Active Substance: HYDROCORTISONE
     Indication: INJECTION SITE REACTION
     Dosage: DAY 1, 4, 8 AND 11 OF EVERY CYCLE, 1 APPLICATOR FULL
     Route: 061
     Dates: start: 20170210
  10. LOPERAMIDE [Concomitant]
     Active Substance: LOPERAMIDE
     Indication: ANTIDIARRHOEAL SUPPORTIVE CARE
     Dosage: AS NECESSARY
     Route: 048
     Dates: start: 20170131, end: 20170626
  11. NOVORAPID [Concomitant]
     Active Substance: INSULIN ASPART
     Dosage: DOSAGE FORM: UNKNOWN, 100 UNIT/ML  AS NECESSARY
     Route: 058
     Dates: start: 20170604
  12. DEXAMETHASONE. [Suspect]
     Active Substance: DEXAMETHASONE
     Indication: PLASMA CELL MYELOMA
     Dosage: DOSAGE FORM: UNSPECIFIED, ON DAYS 1, 2, 4, 5, 8, 9, 11 AND 12 OF 21 DAYS CYCLE
     Route: 048
  13. MIDODRINE [Concomitant]
     Active Substance: MIDODRINE
     Indication: HYPOTENSION
     Route: 048
     Dates: start: 20170313, end: 20170320
  14. MIDODRINE [Concomitant]
     Active Substance: MIDODRINE
     Route: 048
     Dates: start: 20170320
  15. ORAMORPH [Concomitant]
     Active Substance: MORPHINE SULFATE
     Indication: BACK PAIN
     Route: 048
     Dates: start: 20170324
  16. RANITIDINE. [Concomitant]
     Active Substance: RANITIDINE
     Indication: GASTROOESOPHAGEAL REFLUX PROPHYLAXIS
     Route: 048
     Dates: start: 20170131
  17. ACICLOVIR [Concomitant]
     Active Substance: ACYCLOVIR
     Indication: ANTIVIRAL PROPHYLAXIS
     Route: 048
     Dates: start: 20170130
  18. NOVORAPID [Concomitant]
     Active Substance: INSULIN ASPART
     Indication: DIABETES MELLITUS
     Dosage: DOSAGE FORM: UNKNOWN, 100 UNIT/ML (1)
     Route: 058
     Dates: start: 20170601, end: 20170601
  19. HUMULIN L [Concomitant]
     Active Substance: INSULIN HUMAN
     Indication: DIABETES MELLITUS
     Route: 058
     Dates: start: 20170601
  20. RAMIPRIL. [Concomitant]
     Active Substance: RAMIPRIL
     Route: 048
     Dates: start: 20170320
  21. ORAMORPH [Concomitant]
     Active Substance: MORPHINE SULFATE
     Indication: PAIN IN EXTREMITY
  22. CETIRIZINE [Concomitant]
     Active Substance: CETIRIZINE HYDROCHLORIDE
     Indication: INJECTION SITE REACTION
  23. CETIRIZINE [Concomitant]
     Active Substance: CETIRIZINE HYDROCHLORIDE
     Indication: PROPHYLAXIS OF NAUSEA AND VOMITING
     Dosage: DOSAGE FORM: UNSPECIFIED, DAY 1, 4, 8 AND 11 (1)
     Route: 048
     Dates: start: 20170210
  24. VENETOCLAX. [Suspect]
     Active Substance: VENETOCLAX
     Indication: PLASMA CELL MYELOMA
     Dosage: DAILY
     Route: 048
     Dates: start: 20170131, end: 20170612
  25. VENETOCLAX. [Suspect]
     Active Substance: VENETOCLAX
     Dosage: DAILY
     Route: 048
     Dates: start: 20170613, end: 20170620
  26. ATORVASTATIN [Concomitant]
     Active Substance: ATORVASTATIN
     Indication: PROPHYLAXIS
     Route: 048
     Dates: start: 2015
  27. ALLOPURINOL. [Concomitant]
     Active Substance: ALLOPURINOL
     Indication: PROPHYLAXIS
     Route: 048
     Dates: start: 20170131
  28. PARACETAMOL [Concomitant]
     Active Substance: ACETAMINOPHEN
     Indication: BACK PAIN
     Route: 048
     Dates: start: 20170324
  29. PARACETAMOL [Concomitant]
     Active Substance: ACETAMINOPHEN
     Indication: LOWER RESPIRATORY TRACT INFECTION
  30. NOVORAPID [Concomitant]
     Active Substance: INSULIN ASPART
     Dosage: DOSAGE FORM: UNKNOWN, 5000 UNIT (1) DAILY
     Route: 058
     Dates: start: 20170530, end: 20170603
  31. CODEINE [Concomitant]
     Active Substance: CODEINE
     Indication: BACK PAIN
     Dosage: 30-60 MG AS NECESSARY
     Route: 048
     Dates: start: 20170603

REACTIONS (3)
  - Hallucination [Unknown]
  - Speech disorder [Unknown]
  - Confusional state [Not Recovered/Not Resolved]

NARRATIVE: CASE EVENT DATE: 201705
